FAERS Safety Report 12437288 (Version 2)
Quarter: 2016Q3

REPORT INFORMATION
  Report Type: Spontaneous
  Country: IL (occurrence: IL)
  Receive Date: 20160606
  Receipt Date: 20160707
  Transmission Date: 20161109
  Serious: Yes (Other)
  Sender: FDA-Public Use
  Company Number: IL-BAXTER-2016BAX028443

PATIENT
  Age: 64 Year
  Sex: Female

DRUGS (24)
  1. NACL 0.9% USP [Suspect]
     Active Substance: SODIUM CHLORIDE
     Route: 065
     Dates: start: 20160413, end: 20160413
  2. TAXOL [Suspect]
     Active Substance: PACLITAXEL
     Route: 065
     Dates: start: 20160427, end: 20160427
  3. TAXOL [Suspect]
     Active Substance: PACLITAXEL
     Dosage: 30 MG/5 ML
     Route: 065
     Dates: start: 20160511, end: 20160511
  4. TAXOL [Suspect]
     Active Substance: PACLITAXEL
     Dosage: 100 MG/ 16.7 ML
     Route: 065
     Dates: start: 20160518, end: 20160518
  5. VABEN [Concomitant]
     Active Substance: OXAZEPAM
     Indication: PRODUCT USED FOR UNKNOWN INDICATION
     Route: 065
  6. VERAPRESS [Concomitant]
     Indication: PRODUCT USED FOR UNKNOWN INDICATION
     Route: 065
  7. NACL 0.9% USP [Suspect]
     Active Substance: SODIUM CHLORIDE
     Dosage: 0.9% 250 ML
     Route: 065
     Dates: start: 20160518, end: 20160518
  8. TAXOL [Suspect]
     Active Substance: PACLITAXEL
     Route: 065
     Dates: start: 20160413, end: 20160413
  9. TAXOL [Suspect]
     Active Substance: PACLITAXEL
     Dosage: 100 MG/16.7 ML
     Route: 065
     Dates: start: 20160504, end: 20160504
  10. TAXOL [Suspect]
     Active Substance: PACLITAXEL
     Route: 065
     Dates: start: 20160525
  11. VITAMIN D [Concomitant]
     Active Substance: CHOLECALCIFEROL
     Indication: PRODUCT USED FOR UNKNOWN INDICATION
     Route: 065
  12. ARTHRYL [Concomitant]
     Indication: PRODUCT USED FOR UNKNOWN INDICATION
     Route: 065
  13. NACL 0.9% USP [Suspect]
     Active Substance: SODIUM CHLORIDE
     Dosage: 0.9% 250 ML
     Route: 065
     Dates: start: 20160511, end: 20160511
  14. NACL 0.9% USP [Suspect]
     Active Substance: SODIUM CHLORIDE
     Route: 065
     Dates: start: 20160525
  15. TAXOL [Suspect]
     Active Substance: PACLITAXEL
     Dosage: 30 MG/ 5 ML
     Route: 065
     Dates: start: 20160504, end: 20160504
  16. TAXOL [Suspect]
     Active Substance: PACLITAXEL
     Indication: BREAST CANCER
     Route: 065
     Dates: start: 20160406, end: 20160406
  17. TAXOL [Suspect]
     Active Substance: PACLITAXEL
     Route: 065
     Dates: start: 20160420, end: 20160420
  18. NACL 0.9% USP [Suspect]
     Active Substance: SODIUM CHLORIDE
     Indication: MEDICATION DILUTION
     Route: 065
     Dates: start: 20160406, end: 20160406
  19. NACL 0.9% USP [Suspect]
     Active Substance: SODIUM CHLORIDE
     Route: 065
     Dates: start: 20160420, end: 20160420
  20. NACL 0.9% USP [Suspect]
     Active Substance: SODIUM CHLORIDE
     Dosage: 0.9% 250 ML
     Route: 065
     Dates: start: 20160504, end: 20160504
  21. NORMITEN [Concomitant]
     Active Substance: ATENOLOL
     Indication: PRODUCT USED FOR UNKNOWN INDICATION
     Route: 065
  22. CYMBALTA [Concomitant]
     Active Substance: DULOXETINE HYDROCHLORIDE
     Indication: PRODUCT USED FOR UNKNOWN INDICATION
     Route: 065
  23. NACL 0.9% USP [Suspect]
     Active Substance: SODIUM CHLORIDE
     Route: 065
     Dates: start: 20160427, end: 20160427
  24. TAXOL [Suspect]
     Active Substance: PACLITAXEL
     Dosage: 30 MG/5 ML, ABOUT 120 MG
     Route: 065
     Dates: start: 20160518, end: 20160518

REACTIONS (1)
  - Diarrhoea [Recovered/Resolved]

NARRATIVE: CASE EVENT DATE: 201605
